FAERS Safety Report 9423882 (Version 1)
Quarter: 2013Q3

REPORT INFORMATION
  Report Type: Spontaneous
  Country: GB (occurrence: GB)
  Receive Date: 20130729
  Receipt Date: 20130729
  Transmission Date: 20140515
  Serious: Yes (Other)
  Sender: FDA-Public Use
  Company Number: GB-AMGEN-GBRSP2013052637

PATIENT
  Age: 70 Year
  Sex: Female

DRUGS (5)
  1. ENBREL [Suspect]
     Indication: RHEUMATOID ARTHRITIS
     Dosage: 50 MG, WEEKLY
     Route: 058
     Dates: start: 20091013
  2. FELODIPINE [Concomitant]
     Dosage: 2.5 MG, 1X/DAY
     Route: 048
  3. OMEPRAZOLE [Concomitant]
     Dosage: 40 MG, 1X/DAY
     Route: 048
  4. DICLOFENAC [Concomitant]
     Dosage: UNK PRN
     Route: 048
  5. CO-CODAMOL [Concomitant]
     Dosage: UNK PRN
     Route: 048

REACTIONS (2)
  - Rheumatoid arthritis [Recovered/Resolved]
  - Product quality issue [Recovered/Resolved]
